FAERS Safety Report 16442765 (Version 1)
Quarter: 2019Q2

REPORT INFORMATION
  Report Type: Spontaneous
  Country: US (occurrence: US)
  Receive Date: 20190617
  Receipt Date: 20190617
  Transmission Date: 20190711
  Serious: Yes (Hospitalization)
  Sender: FDA-Public Use
  Company Number: US-ELI_LILLY_AND_COMPANY-US201906006677

PATIENT
  Sex: Male

DRUGS (5)
  1. LASIX FUROSEMIDE SODIUM [Concomitant]
     Indication: HEPATITIS C
  2. LACTULOSE. [Concomitant]
     Active Substance: LACTULOSE
     Indication: HEPATITIS C
  3. LACTULOSE. [Concomitant]
     Active Substance: LACTULOSE
     Indication: HEPATIC CIRRHOSIS
  4. FORTEO [Suspect]
     Active Substance: TERIPARATIDE
     Indication: PRODUCT USED FOR UNKNOWN INDICATION
     Dosage: UNK, UNKNOWN
     Route: 065
  5. LASIX FUROSEMIDE SODIUM [Concomitant]
     Indication: HEPATIC CIRRHOSIS

REACTIONS (4)
  - Limb injury [Unknown]
  - Impaired healing [Unknown]
  - Ascites [Unknown]
  - Localised oedema [Unknown]
